FAERS Safety Report 12799458 (Version 1)
Quarter: 2016Q3

REPORT INFORMATION
  Report Type: Report from Study
  Country: US (occurrence: US)
  Receive Date: 20160930
  Receipt Date: 20160930
  Transmission Date: 20161109
  Serious: Yes (Other)
  Sender: FDA-Public Use
  Company Number: US-AMGEN-USASL2016133457

PATIENT

DRUGS (1)
  1. KYPROLIS [Suspect]
     Active Substance: CARFILZOMIB
     Indication: PRODUCT USED FOR UNKNOWN INDICATION
     Route: 065

REACTIONS (43)
  - Staphylococcal sepsis [Unknown]
  - Hypogammaglobulinaemia [Unknown]
  - Vitamin B complex deficiency [Unknown]
  - Influenza [Unknown]
  - Agranulocytosis [Unknown]
  - Hypokalaemia [Unknown]
  - Immune system disorder [Unknown]
  - Oral candidiasis [Unknown]
  - Upper-airway cough syndrome [Unknown]
  - Pharyngitis [Unknown]
  - Anaemia [Unknown]
  - Colon cancer [Unknown]
  - Polyneuropathy [Unknown]
  - Neutropenia [Unknown]
  - Generalised anxiety disorder [Unknown]
  - Emphysema [Unknown]
  - Hyperlipidaemia [Unknown]
  - Nausea [Unknown]
  - Hypocalcaemia [Unknown]
  - Asthenia [Unknown]
  - Bronchitis [Unknown]
  - Essential hypertension [Unknown]
  - Sepsis [Unknown]
  - Cardiomegaly [Unknown]
  - Nasal congestion [Unknown]
  - Cough [Unknown]
  - Pneumonia [Unknown]
  - Hypertrophy of tongue papillae [Unknown]
  - Decreased appetite [Unknown]
  - Fatigue [Unknown]
  - Dental caries [Unknown]
  - Tachycardia [Unknown]
  - Arrhythmia [Unknown]
  - Acidosis [Unknown]
  - Cardiac disorder [Unknown]
  - Pain [Unknown]
  - Hypomagnesaemia [Unknown]
  - Osteomalacia [Unknown]
  - Chronic sinusitis [Unknown]
  - Abnormal behaviour [Unknown]
  - Investigation abnormal [Unknown]
  - Dyspnoea [Unknown]
  - Nicotine dependence [Unknown]

NARRATIVE: CASE EVENT DATE: 20141007
